FAERS Safety Report 23640585 (Version 6)
Quarter: 2024Q4

REPORT INFORMATION
  Report Type: Spontaneous
  Country: US (occurrence: US)
  Receive Date: 20240318
  Receipt Date: 20241128
  Transmission Date: 20250114
  Serious: Yes (Hospitalization, Other)
  Sender: CSL BEHRING
  Company Number: US-BEH-2024169673

PATIENT
  Age: 74 Year
  Sex: Female

DRUGS (33)
  1. HIZENTRA [Suspect]
     Active Substance: HUMAN IMMUNOGLOBULIN G
     Indication: Immunodeficiency
     Dosage: 13 GRAM, QW (EVERY 7 DAYS)
     Route: 058
  2. HIZENTRA [Suspect]
     Active Substance: HUMAN IMMUNOGLOBULIN G
     Dosage: 13 GRAM, QW (EVERY 7 DAYS)
     Route: 058
  3. HIZENTRA [Suspect]
     Active Substance: HUMAN IMMUNOGLOBULIN G
     Dosage: 13 GRAM, QW (EVERY 7 DAYS)
     Route: 058
  4. GABAPENTIN [Concomitant]
     Active Substance: GABAPENTIN
     Dosage: 800 MILLIGRAM
  5. MIRTAZAPINE [Concomitant]
     Active Substance: MIRTAZAPINE
     Dosage: 30 MILLIGRAM
  6. VALSARTAN AND HYDROCHLOROTHIAZIDE [Concomitant]
     Active Substance: HYDROCHLOROTHIAZIDE\VALSARTAN
  7. NEOMYCIN SULFATE\POLYMYXIN B SULFATE [Concomitant]
     Active Substance: NEOMYCIN SULFATE\POLYMYXIN B SULFATE
     Dosage: 1000 MG
  8. BIDIL [Concomitant]
     Active Substance: HYDRALAZINE HYDROCHLORIDE\ISOSORBIDE DINITRATE
     Dosage: 20-37.5 MG
  9. BIDIL [Concomitant]
     Active Substance: HYDRALAZINE HYDROCHLORIDE\ISOSORBIDE DINITRATE
     Dosage: 20-37.5 MG
  10. PLAVIX [Concomitant]
     Active Substance: CLOPIDOGREL BISULFATE
     Dosage: 75 MILLIGRAM
  11. OMEPRAZOLE [Concomitant]
     Active Substance: OMEPRAZOLE
     Dosage: 40 MILLIGRAM
  12. ALLOPURINOL [Concomitant]
     Active Substance: ALLOPURINOL
     Dosage: 100 MILLIGRAM
  13. ATORVASTATIN [Concomitant]
     Active Substance: ATORVASTATIN
     Dosage: 80 MILLIGRAM
  14. AZELASTINE [Concomitant]
     Active Substance: AZELASTINE
     Dosage: 0.15 %
  15. CHOLECALCIFEROL [Concomitant]
     Active Substance: CHOLECALCIFEROL
  16. COLCHICINE [Concomitant]
     Active Substance: COLCHICINE
     Dosage: 0.6 MILLIGRAM
  17. CYPROHEPTADINE [Concomitant]
     Active Substance: CYPROHEPTADINE
     Dosage: 4 MILLIGRAM
  18. DEXILANT [Concomitant]
     Active Substance: DEXLANSOPRAZOLE
     Dosage: 60 MILLIGRAM
  19. FAMOTIDINE [Concomitant]
     Active Substance: FAMOTIDINE
     Dosage: 20 MILLIGRAM
  20. FLUTICASONE [Concomitant]
     Active Substance: FLUTICASONE
     Dosage: 50 MICROGRAM AC
  21. FOLIC ACID [Concomitant]
     Active Substance: FOLIC ACID
     Dosage: 1 MILLIGRAM
  22. FUROSEMIDE [Concomitant]
     Active Substance: FUROSEMIDE
     Dosage: 20 MILLIGRAM
  23. GUAIFENESIN [Concomitant]
     Active Substance: GUAIFENESIN
     Dosage: 400 MILLIGRAM
  24. MAGNESIUM OXIDE [Concomitant]
     Active Substance: MAGNESIUM OXIDE
     Dosage: 200 MILLIGRAM
  25. MECLIZINE HYDROCHLORIDE [Concomitant]
     Active Substance: MECLIZINE HYDROCHLORIDE
     Dosage: 25 MILLIGRAM
  26. MONTELUKAST [Concomitant]
     Active Substance: MONTELUKAST
     Dosage: 10 MILLIGRAM
  27. NOVOLOG [Concomitant]
     Active Substance: INSULIN ASPART
     Dosage: 100 UNITS/ML
  28. PREDNISONE [Concomitant]
     Active Substance: PREDNISONE
     Dosage: 20 MILLIGRAM
  29. PROVENTIL HFA [Concomitant]
     Active Substance: ALBUTEROL SULFATE
  30. STIOLTO RESPIMAT [Concomitant]
     Active Substance: OLODATEROL HYDROCHLORIDE\TIOTROPIUM BROMIDE MONOHYDRATE
     Dosage: 2.5-2.5M
  31. SYSTANE COMPLETE [Concomitant]
     Active Substance: PROPYLENE GLYCOL
     Dosage: 0.6 %
  32. XARELTO [Concomitant]
     Active Substance: RIVAROXABAN
     Dosage: 20 MILLIGRAM
  33. CYPROHEPTADINE [Concomitant]
     Active Substance: CYPROHEPTADINE

REACTIONS (12)
  - Pneumonia [Not Recovered/Not Resolved]
  - Fatigue [Recovered/Resolved]
  - Pneumonia [Recovered/Resolved]
  - Fall [Unknown]
  - Loss of consciousness [Unknown]
  - Loss of consciousness [Unknown]
  - Hypotension [Unknown]
  - Loss of consciousness [Unknown]
  - Fatigue [Unknown]
  - Lethargy [Unknown]
  - Product dose omission issue [Unknown]
  - Abdominal distension [Unknown]

NARRATIVE: CASE EVENT DATE: 20240301
